FAERS Safety Report 8065624 (Version 7)
Quarter: 2017Q4

REPORT INFORMATION
  Report Type: Report from Study
  Country: DE (occurrence: DE)
  Receive Date: 20110802
  Receipt Date: 20171011
  Transmission Date: 20180321
  Serious: Yes (Other)
  Sender: FDA-Public Use
  Company Number: PHHY2011DE42424

PATIENT
  Age: 38 Year
  Sex: Male
  Weight: 95 kg

DRUGS (7)
  1. EXTAVIA [Suspect]
     Active Substance: INTERFERON BETA-1B
     Indication: MULTIPLE SCLEROSIS
     Dosage: 250 UG, QOD
     Route: 058
     Dates: start: 20110428, end: 2012
  2. PREDNISOLON [Suspect]
     Active Substance: PREDNISOLONE
     Dosage: 4 MG, QD (FOR 2 DAYS)
     Route: 048
     Dates: start: 201106, end: 201106
  3. PREDNISOLON [Suspect]
     Active Substance: PREDNISOLONE
     Indication: MULTIPLE SCLEROSIS RELAPSE
     Dosage: 1000 MG, QD (FOR 5 DAYS)
     Route: 048
     Dates: start: 201106, end: 201106
  4. PREDNISOLON [Suspect]
     Active Substance: PREDNISOLONE
     Dosage: 16 MG, QD (FOR 2 DAYS)
     Route: 048
     Dates: start: 201106, end: 201106
  5. PREDNISOLON [Suspect]
     Active Substance: PREDNISOLONE
     Dosage: 3 MG, QD (FOR 2 DAYS)
     Route: 048
     Dates: start: 201106, end: 201106
  6. PREDNISOLON [Suspect]
     Active Substance: PREDNISOLONE
     Dosage: 2 MG, QD (FOR 2 DAYS)
     Route: 048
     Dates: start: 201106, end: 201106
  7. PREDNISOLON [Suspect]
     Active Substance: PREDNISOLONE
     Dosage: 1 MG, QD (FOR 2 DAYS)
     Route: 048
     Dates: start: 201106, end: 201106

REACTIONS (18)
  - Injection site haematoma [Recovered/Resolved]
  - Platelet count decreased [Unknown]
  - Injection site erythema [Recovered/Resolved]
  - Influenza like illness [Recovered/Resolved]
  - Treatment failure [Unknown]
  - Hepatitis B antigen positive [Recovering/Resolving]
  - Liver function test increased [Recovering/Resolving]
  - Visual impairment [Recovered/Resolved]
  - Dizziness [Recovered/Resolved]
  - White blood cell count increased [Unknown]
  - Haemoglobin decreased [Unknown]
  - Gastritis [Recovering/Resolving]
  - C-reactive protein increased [Unknown]
  - Multiple sclerosis relapse [Unknown]
  - Abdominal pain upper [Recovering/Resolving]
  - Serum ferritin increased [Unknown]
  - Multiple sclerosis relapse [Recovered/Resolved]
  - Injection site pain [Recovered/Resolved]

NARRATIVE: CASE EVENT DATE: 20110428
